FAERS Safety Report 12674174 (Version 1)
Quarter: 2016Q3

REPORT INFORMATION
  Report Type: Spontaneous
  Country: US (occurrence: US)
  Receive Date: 20160822
  Receipt Date: 20160822
  Transmission Date: 20161109
  Serious: No
  Sender: FDA-Public Use
  Company Number: US-GLAXOSMITHKLINE-US2016115682

PATIENT
  Age: 50 Year
  Sex: Female

DRUGS (1)
  1. TANZEUM [Suspect]
     Active Substance: ALBIGLUTIDE
     Indication: PRODUCT USED FOR UNKNOWN INDICATION
     Dosage: 30 MG, UNK
     Route: 058
     Dates: start: 20160717

REACTIONS (4)
  - Wrong technique in product usage process [Unknown]
  - Device use error [Unknown]
  - Nausea [Unknown]
  - Medication error [Unknown]

NARRATIVE: CASE EVENT DATE: 2016
